FAERS Safety Report 25347362 (Version 2)
Quarter: 2025Q3

REPORT INFORMATION
  Report Type: Spontaneous
  Country: KR (occurrence: KR)
  Receive Date: 20250522
  Receipt Date: 20250702
  Transmission Date: 20251021
  Serious: Yes (Death)
  Sender: MYLAN
  Company Number: KR-MYLANLABS-2025M1043755

PATIENT
  Age: 7 Year
  Sex: Male
  Weight: 12.1 kg

DRUGS (8)
  1. ATORVASTATIN [Suspect]
     Active Substance: ATORVASTATIN
     Indication: Arteriosclerosis
  2. ATORVASTATIN [Suspect]
     Active Substance: ATORVASTATIN
     Dosage: 5 MILLIGRAM, QD
     Dates: start: 20231012
  3. ATORVASTATIN [Suspect]
     Active Substance: ATORVASTATIN
     Dosage: 7 MILLIGRAM, QD
     Dates: start: 20231228
  4. ATORVASTATIN [Suspect]
     Active Substance: ATORVASTATIN
     Dosage: 10 MILLIGRAM, QD
     Dates: start: 20240229
  5. PLAVIX [Suspect]
     Active Substance: CLOPIDOGREL BISULFATE
     Indication: Arteriosclerosis
     Dosage: 37.5 MILLIGRAM, QOD
     Dates: start: 20210911
  6. PLAVIX [Suspect]
     Active Substance: CLOPIDOGREL BISULFATE
     Dates: start: 20231023, end: 20231029
  7. PLAVIX [Suspect]
     Active Substance: CLOPIDOGREL BISULFATE
     Dates: start: 20240710, end: 20240716
  8. ENOXAPARIN SODIUM [Suspect]
     Active Substance: ENOXAPARIN SODIUM
     Indication: Vascular disorder prophylaxis

REACTIONS (1)
  - Drug ineffective [Fatal]
